FAERS Safety Report 15814199 (Version 1)
Quarter: 2019Q1

REPORT INFORMATION
  Report Type: Spontaneous
  Country: US (occurrence: US)
  Receive Date: 20190111
  Receipt Date: 20190111
  Transmission Date: 20190417
  Serious: No
  Sender: FDA-Public Use
  Company Number: US-JAZZ-2018-US-004539

PATIENT
  Age: 59 Year
  Sex: Female

DRUGS (2)
  1. PRIALT [Suspect]
     Active Substance: ZICONOTIDE ACETATE
     Indication: INTERVERTEBRAL DISC DISORDER
     Dosage: UNK ?G, QH
     Route: 037
  2. PRIALT [Suspect]
     Active Substance: ZICONOTIDE ACETATE
     Indication: RADICULOPATHY

REACTIONS (2)
  - Oral mucosal exfoliation [Unknown]
  - Thought blocking [Not Recovered/Not Resolved]

NARRATIVE: CASE EVENT DATE: 201703
